FAERS Safety Report 5364329-5 (Version None)
Quarter: 2007Q2

REPORT INFORMATION
  Report Type: 
  Country: None (occurrence: None)
  Receive Date: 20070618
  Receipt Date: 20070605
  Transmission Date: 20071010
  Serious: Yes (Life-Threatening)
  Sender: FDA-Public Use
  Company Number: 2007-00510

PATIENT
  Age: 61 Year
  Sex: Female

DRUGS (13)
  1. VELCADE [Suspect]
     Indication: MULTIPLE MYELOMA
     Dosage: 1.80 MG
     Dates: start: 20061211, end: 20070323
  2. DEXAMETHASONE TAB [Suspect]
     Indication: MULTIPLE SCLEROSIS
     Dosage: 20.00 MG
     Dates: start: 20070105, end: 20070324
  3. SULFAMETHOXAZOLE + TRIMETHOPRIM [Concomitant]
  4. DIFLUCAN [Concomitant]
  5. ALDENDRONATE SODIUM (ALENDRONATE SODIUM) [Concomitant]
  6. ALLOPURINOL [Concomitant]
  7. SELBEX (TEPRENONE) [Concomitant]
  8. NIZATIDINE [Concomitant]
  9. MAGNESIUM OXIDE (MAGNESIUM OXIDE) [Concomitant]
  10. ZOMETA [Concomitant]
  11. LASIX [Concomitant]
  12. PENTAZOCINE LACTATE [Concomitant]
  13. PLATELETS [Concomitant]

REACTIONS (7)
  - DEEP VEIN THROMBOSIS [None]
  - HAEMOGLOBIN DECREASED [None]
  - HYPERGLYCAEMIA [None]
  - HYPERKALAEMIA [None]
  - PLATELET COUNT DECREASED [None]
  - PULMONARY INFARCTION [None]
  - RESPIRATORY FAILURE [None]
